FAERS Safety Report 7913102 (Version 4)
Quarter: 2013Q1

REPORT INFORMATION
  Report Type: Spontaneous
  Country: US (occurrence: US)
  Receive Date: 20110425
  Receipt Date: 20130329
  Transmission Date: 20140127
  Serious: Yes (Hospitalization, Other)
  Sender: FDA-Public Use
  Company Number: US-ROCHE-751892

PATIENT
  Sex: Male
  Weight: 59 kg

DRUGS (6)
  1. ACCUTANE [Suspect]
     Indication: ACNE CYSTIC
     Route: 065
     Dates: start: 1993, end: 1994
  2. ACCUTANE [Suspect]
     Route: 065
     Dates: start: 1995, end: 1997
  3. ACCUTANE [Suspect]
     Route: 065
  4. ACCUTANE [Suspect]
     Route: 065
     Dates: start: 20000309, end: 20000501
  5. TYLENOL [Concomitant]
  6. MOTRIN [Concomitant]

REACTIONS (5)
  - Crohn^s disease [Unknown]
  - Intestinal obstruction [Unknown]
  - Anxiety [Unknown]
  - Inflammatory bowel disease [Unknown]
  - Depressed mood [Unknown]
